FAERS Safety Report 15700950 (Version 1)
Quarter: 2018Q4

REPORT INFORMATION
  Report Type: Report from Study
  Country: US (occurrence: US)
  Receive Date: 20181207
  Receipt Date: 20181207
  Transmission Date: 20190205
  Serious: Yes (Life-Threatening, Other)
  Sender: FDA-Public Use
  Company Number: US-JNJFOC-20181207933

PATIENT
  Age: 48 Year
  Sex: Female
  Weight: 104.31 kg

DRUGS (4)
  1. TRASTUZUMAB. [Suspect]
     Active Substance: TRASTUZUMAB
     Indication: BREAST CANCER METASTATIC
     Dosage: Q 3 WEEKS, 6 MG/KG IN 250 ML NORMAL SALINE??START PERIOD : 41 DAYS
     Route: 042
     Dates: start: 20181030
  2. TRASTUZUMAB. [Suspect]
     Active Substance: TRASTUZUMAB
     Indication: BREAST CANCER METASTATIC
     Dosage: Q 3 WEEKS, 6 MG/KG IN 250 ML NORMAL SALINE??START PERIOD:41 DAYS
     Route: 042
     Dates: start: 20181010
  3. TRASTUZUMAB. [Suspect]
     Active Substance: TRASTUZUMAB
     Indication: BREAST CANCER METASTATIC
     Dosage: Q 3 WEEKS, 6 MG/KG IN 250 ML NORMAL SALINE??START PERIOD : 41 DAYS
     Route: 042
     Dates: start: 20181119
  4. IBRUTINIB [Suspect]
     Active Substance: IBRUTINIB
     Indication: BREAST CANCER METASTATIC
     Dosage: START PERIOD:41 DAYS
     Route: 048
     Dates: start: 20181010, end: 20181128

REACTIONS (2)
  - Aspartate aminotransferase increased [Not Recovered/Not Resolved]
  - Alanine aminotransferase increased [Not Recovered/Not Resolved]

NARRATIVE: CASE EVENT DATE: 20181119
